FAERS Safety Report 5589474-0 (Version None)
Quarter: 2008Q1

REPORT INFORMATION
  Report Type: 
  Country: None (occurrence: None)
  Receive Date: 20080114
  Receipt Date: 20071231
  Transmission Date: 20080703
  Serious: Yes (Other)
  Sender: FDA-Public Use
  Company Number: US-AMGEN-US258710

PATIENT
  Sex: Female

DRUGS (2)
  1. ENBREL [Suspect]
     Indication: RHEUMATOID ARTHRITIS
     Route: 058
     Dates: start: 20050601
  2. PLAQUENIL [Concomitant]
     Route: 065
     Dates: start: 20050101

REACTIONS (3)
  - INJECTION SITE IRRITATION [None]
  - NERVE INJURY [None]
  - SENSORY LOSS [None]
